FAERS Safety Report 5013975-7 (Version None)
Quarter: 2006Q2

REPORT INFORMATION
  Report Type: 
  Country: None (occurrence: None)
  Receive Date: 20060414
  Receipt Date: 20060130
  Transmission Date: 20061013
  Serious: No
  Sender: FDA-Public Use
  Company Number: 2006SP000524

PATIENT
  Age: 38 Year
  Sex: Female
  Weight: 77.1115 kg

DRUGS (2)
  1. LUNESTA [Suspect]
     Dosage: 1X; ORAL
     Route: 048
  2. SYNTHROID [Concomitant]

REACTIONS (1)
  - DYSGEUSIA [None]
